FAERS Safety Report 19493943 (Version 1)
Quarter: 2021Q3

REPORT INFORMATION
  Report Type: Spontaneous
  Country: GB (occurrence: GB)
  Receive Date: 20210705
  Receipt Date: 20210705
  Transmission Date: 20211014
  Serious: Yes (Other)
  Sender: FDA-Public Use
  Company Number: GB-009507513-2107GBR000950

PATIENT
  Sex: Male

DRUGS (1)
  1. DORZOLAMIDE HYDROCHLORIDE. [Suspect]
     Active Substance: DORZOLAMIDE HYDROCHLORIDE
     Dosage: ONE DROP TWICE/DAY IN RIGHT EYE (20 MG/ML EYE DROPS) (1 GTT,2 IN 1 D)
     Route: 047
     Dates: start: 20210523

REACTIONS (2)
  - Balance disorder [Unknown]
  - Dizziness [Unknown]
